FAERS Safety Report 19992291 (Version 1)
Quarter: 2021Q4

REPORT INFORMATION
  Report Type: Spontaneous
  Country: GB (occurrence: GB)
  Receive Date: 20211025
  Receipt Date: 20211025
  Transmission Date: 20220303
  Serious: Yes (Hospitalization, Other)
  Sender: FDA-Public Use
  Company Number: GB-ACCORD-239424

PATIENT
  Age: 37 Year
  Sex: Male

DRUGS (5)
  1. METHOTREXATE [Suspect]
     Active Substance: METHOTREXATE
     Indication: Metastases to meninges
     Dates: start: 2020
  2. CYTARABINE [Suspect]
     Active Substance: CYTARABINE
     Indication: Metastases to meninges
     Dates: start: 2020
  3. THIOTEPA [Suspect]
     Active Substance: THIOTEPA
     Indication: Metastases to meninges
     Dates: start: 2020
  4. RITUXIMAB [Suspect]
     Active Substance: RITUXIMAB
     Indication: Metastases to meninges
     Dates: start: 2020
  5. GRANULOCYTE COLONY STIMULATING FACT [Concomitant]

REACTIONS (3)
  - Off label use [Unknown]
  - Sepsis [Recovering/Resolving]
  - Thrombocytopenia [Recovering/Resolving]
